FAERS Safety Report 11716948 (Version 1)
Quarter: 2015Q4

REPORT INFORMATION
  Report Type: Spontaneous
  Country: JP (occurrence: JP)
  Receive Date: 20151109
  Receipt Date: 20151109
  Transmission Date: 20160304
  Serious: Yes (Other)
  Sender: FDA-Public Use
  Company Number: JP-BAYER-2015-457257

PATIENT
  Age: 79 Year
  Sex: Male

DRUGS (3)
  1. BAYASPIRIN [Suspect]
     Active Substance: ASPIRIN
     Indication: CEREBRAL INFARCTION
     Dosage: 100 MG, QD
     Route: 048
     Dates: start: 201504, end: 201509
  2. PLAVIX [Interacting]
     Active Substance: CLOPIDOGREL BISULFATE
     Dosage: UNK
     Route: 048
     Dates: start: 201504
  3. BAYASPIRIN [Interacting]
     Active Substance: ASPIRIN
     Indication: MYOCARDIAL INFARCTION

REACTIONS (3)
  - Pulmonary alveolar haemorrhage [Recovering/Resolving]
  - Interstitial lung disease [Recovering/Resolving]
  - Labelled drug-drug interaction medication error [None]

NARRATIVE: CASE EVENT DATE: 20150901
